FAERS Safety Report 8976248 (Version 3)
Quarter: 2013Q1

REPORT INFORMATION
  Report Type: Spontaneous
  Country: GB (occurrence: GB)
  Receive Date: 20121220
  Receipt Date: 20130204
  Transmission Date: 20140127
  Serious: Yes (Life-Threatening, Hospitalization)
  Sender: FDA-Public Use
  Company Number: PHFR2012GB006427

PATIENT
  Age: 41 Year
  Sex: Male

DRUGS (8)
  1. CLOZARIL [Suspect]
     Indication: SCHIZOPHRENIA
     Dosage: UNK UKN, UNK
     Route: 048
     Dates: start: 20070126, end: 20121212
  2. CLOZARIL [Suspect]
     Dosage: 150 MG, BD
     Route: 048
  3. PARACETAMOL [Suspect]
     Dosage: 200 DF, UNK
     Dates: start: 20121223
  4. SERETIDE EVOHALER [Concomitant]
     Indication: ASTHMA
     Dosage: 2 DF, (2 PUFFS BD)
  5. TOPIRAMATE [Concomitant]
     Dosage: 150 MG, OD
     Route: 048
  6. VENLAFAXINE [Concomitant]
     Indication: DEPRESSION
     Dosage: 150 MG, OD
     Route: 048
  7. VENLAFAXINE [Concomitant]
     Dosage: 112.5 MG, OD
     Route: 048
  8. RISPERIDONE [Concomitant]
     Indication: PSYCHOTIC DISORDER
     Dosage: 3 MG, BD
     Route: 048

REACTIONS (5)
  - Self injurious behaviour [Unknown]
  - Liver injury [Unknown]
  - Renal disorder [Unknown]
  - Psychotic disorder [Unknown]
  - Overdose [Recovering/Resolving]
